FAERS Safety Report 11139061 (Version 1)
Quarter: 2015Q2

REPORT INFORMATION
  Report Type: Spontaneous
  Country: US (occurrence: US)
  Receive Date: 20150527
  Receipt Date: 20150527
  Transmission Date: 20150821
  Serious: No
  Sender: FDA-Public Use
  Company Number: US-BIOGENIDEC-2015BI070508

PATIENT
  Sex: Male

DRUGS (1)
  1. TECFIDERA [Suspect]
     Active Substance: DIMETHYL FUMARATE
     Indication: PRODUCT USED FOR UNKNOWN INDICATION

REACTIONS (7)
  - Gastric disorder [Unknown]
  - Hypoaesthesia [Unknown]
  - Vomiting [Unknown]
  - Dysgeusia [Unknown]
  - Flatulence [Unknown]
  - Paraesthesia [Unknown]
  - Asthenia [Unknown]
